FAERS Safety Report 7708661-6 (Version None)
Quarter: 2011Q3

REPORT INFORMATION
  Report Type: 
  Country: None (occurrence: None)
  Receive Date: 20110819
  Receipt Date: 20110728
  Transmission Date: 20111222
  Serious: No
  Sender: FDA-Public Use
  Company Number: SPI201100194

PATIENT
  Age: 62 Year
  Sex: Female
  Weight: 75.7 kg

DRUGS (1)
  1. AMITIZA [Suspect]
     Indication: CONSTIPATION
     Dosage: 24 MCG, QD, ORAL
     Route: 048
     Dates: start: 20110621, end: 20110622

REACTIONS (3)
  - FLUSHING [None]
  - CHEST PAIN [None]
  - NAUSEA [None]
